FAERS Safety Report 4736724-6 (Version None)
Quarter: 2005Q3

REPORT INFORMATION
  Report Type: 
  Country: None (occurrence: None)
  Receive Date: 20050805
  Receipt Date: 20050728
  Transmission Date: 20060218
  Serious: Yes (Hospitalization)
  Sender: FDA-Public Use
  Company Number: 2005-07-2062

PATIENT
  Age: 51 Year
  Sex: Female

DRUGS (1)
  1. PEG-INTRON [Suspect]
     Dosage: SUBCUTANEOUS
     Route: 058
     Dates: start: 20050201

REACTIONS (1)
  - HOSPITALISATION [None]
